FAERS Safety Report 9750211 (Version 1)
Quarter: 2013Q4

REPORT INFORMATION
  Report Type: Spontaneous
  Country: FR (occurrence: FR)
  Receive Date: 20131212
  Receipt Date: 20131212
  Transmission Date: 20140711
  Serious: Yes (Other)
  Sender: FDA-Public Use
  Company Number: FR-BAUSCH-BL-2013-006859

PATIENT
  Age: 60 Year
  Sex: Female

DRUGS (4)
  1. YELLOX 0.9 MG/ML EYE DROPS, SOLUTION [Suspect]
     Indication: CATARACT OPERATION
     Route: 047
     Dates: start: 20130925
  2. YELLOX 0.9 MG/ML EYE DROPS, SOLUTION [Suspect]
     Indication: POSTOPERATIVE CARE
  3. TOBRADEX [Suspect]
     Indication: CATARACT OPERATION
     Route: 047
     Dates: start: 20131018
  4. TOBRADEX [Suspect]
     Indication: POSTOPERATIVE CARE

REACTIONS (4)
  - Rebound effect [Recovered/Resolved]
  - Uveitis [Recovered/Resolved]
  - Corneal oedema [Recovered/Resolved]
  - Conjunctival hyperaemia [Recovered/Resolved]
